FAERS Safety Report 22306384 (Version 1)
Quarter: 2023Q2

REPORT INFORMATION
  Report Type: Spontaneous
  Country: PT (occurrence: PT)
  Receive Date: 20230511
  Receipt Date: 20230511
  Transmission Date: 20230722
  Serious: Yes (Disabling)
  Sender: FDA-Public Use
  Company Number: PT-SA-SAC20230505000967

PATIENT
  Age: 55 Year
  Sex: Female

DRUGS (2)
  1. DUPILUMAB [Suspect]
     Active Substance: DUPILUMAB
     Indication: Chronic rhinosinusitis with nasal polyps
     Dosage: UNK
     Route: 058
     Dates: start: 202302, end: 2023
  2. DUPILUMAB [Suspect]
     Active Substance: DUPILUMAB
     Indication: Asthma

REACTIONS (1)
  - Arthritis [Not Recovered/Not Resolved]

NARRATIVE: CASE EVENT DATE: 20230101
